FAERS Safety Report 5728317-9 (Version None)
Quarter: 2008Q2

REPORT INFORMATION
  Report Type: 
  Country: None (occurrence: None)
  Receive Date: 20080502
  Receipt Date: 20080502
  Transmission Date: 20081010
  Serious: Yes (Life-Threatening)
  Sender: FDA-Public Use
  Company Number: None

PATIENT
  Age: 45 Year
  Sex: Female
  Weight: 68.0396 kg

DRUGS (1)
  1. OXAPROZIN [Suspect]
     Indication: JOINT SWELLING
     Dosage: 1 TABLET EVERY 12 HOURS PO
     Route: 048
     Dates: start: 20071105, end: 20080201

REACTIONS (2)
  - CONTUSION [None]
  - HAEMORRHAGE [None]
